FAERS Safety Report 9670691 (Version 4)
Quarter: 2013Q4

REPORT INFORMATION
  Report Type: Spontaneous
  Country: US (occurrence: US)
  Receive Date: 20131106
  Receipt Date: 20131223
  Transmission Date: 20140711
  Serious: No
  Sender: FDA-Public Use
  Company Number: US-009507513-1311USA000889

PATIENT
  Sex: Female
  Weight: 65.76 kg

DRUGS (4)
  1. NEXPLANON [Suspect]
     Indication: CONTRACEPTION
     Dosage: LEFT ARM, FIRST IMPLANT
     Route: 059
     Dates: start: 20130620
  2. IRON (UNSPECIFIED) [Concomitant]
     Route: 048
  3. VITAMINS (UNSPECIFIED) [Concomitant]
  4. INTEGRA (CHONDROITIN SULFATE SODIUM (+) COLLAGEN) [Concomitant]
     Indication: ANAEMIA
     Dosage: UNK, QD
     Route: 048

REACTIONS (5)
  - Device deployment issue [Not Recovered/Not Resolved]
  - Device expulsion [Not Recovered/Not Resolved]
  - Medical device complication [Not Recovered/Not Resolved]
  - Unintended pregnancy [Not Recovered/Not Resolved]
  - Drug dose omission [Unknown]
